FAERS Safety Report 13726201 (Version 3)
Quarter: 2017Q3

REPORT INFORMATION
  Report Type: Spontaneous
  Country: US (occurrence: US)
  Receive Date: 20170707
  Receipt Date: 20170908
  Transmission Date: 20171127
  Serious: No
  Sender: FDA-Public Use
  Company Number: US-GLAXOSMITHKLINE-US2017101277

PATIENT
  Age: 68 Year
  Sex: Female

DRUGS (3)
  1. BREO ELLIPTA [Suspect]
     Active Substance: FLUTICASONE FUROATE\VILANTEROL TRIFENATATE
     Indication: ASTHMA
     Dosage: 1 PUFF(S), 1D
     Route: 055
     Dates: start: 201611
  2. ZYRTEC [Concomitant]
     Active Substance: CETIRIZINE HYDROCHLORIDE
  3. BENZONATATE CAPSULE [Concomitant]

REACTIONS (14)
  - Hypopnoea [Not Recovered/Not Resolved]
  - Increased bronchial secretion [Recovered/Resolved]
  - Malaise [Unknown]
  - Product quality issue [Unknown]
  - Underdose [Unknown]
  - Drug dose omission [Unknown]
  - Asthma [Unknown]
  - Cough [Not Recovered/Not Resolved]
  - Drug ineffective [Recovered/Resolved]
  - Heart rate increased [Recovered/Resolved]
  - Productive cough [Not Recovered/Not Resolved]
  - Sputum discoloured [Unknown]
  - Multiple allergies [Not Recovered/Not Resolved]
  - Wrong technique in device usage process [Unknown]

NARRATIVE: CASE EVENT DATE: 20161201
